FAERS Safety Report 9156192 (Version 1)
Quarter: 2013Q1

REPORT INFORMATION
  Report Type: Spontaneous
  Country: US (occurrence: US)
  Receive Date: 20130311
  Receipt Date: 20130311
  Transmission Date: 20140127
  Serious: No
  Sender: FDA-Public Use
  Company Number: US-TEVA-389959USA

PATIENT
  Age: 25 Year
  Sex: Female
  Weight: 56.75 kg

DRUGS (4)
  1. PLAN B ONE-STEP [Suspect]
     Indication: POST COITAL CONTRACEPTION
     Dosage: 1.5 MILLIGRAM DAILY;
     Route: 048
     Dates: start: 20130214, end: 20130214
  2. VICODIN [Concomitant]
     Indication: BACK PAIN
  3. FLEXERIL [Concomitant]
     Indication: BACK PAIN
  4. ALPRAZOLAM [Concomitant]
     Indication: PRODUCT USED FOR UNKNOWN INDICATION

REACTIONS (1)
  - Menstruation irregular [Not Recovered/Not Resolved]
